FAERS Safety Report 8781635 (Version 1)
Quarter: 2012Q4

REPORT INFORMATION
  Report Type: Report from Study
  Country: US (occurrence: US)
  Receive Date: 20120913
  Receipt Date: 20120913
  Transmission Date: 20130627
  Serious: Yes (Death, Hospitalization)
  Sender: FDA-Public Use
  Company Number: US-EISAI INC-E7867-00259-CLI-US

PATIENT
  Age: 45 Year
  Sex: Female
  Weight: 76 kg

DRUGS (6)
  1. GLIADEL [Suspect]
     Indication: GLIOBLASTOMA
     Dosage: UNKNOWN
     Dates: start: 20120411
  2. DECADRON TAPER [Concomitant]
  3. KEPPRA [Concomitant]
  4. PRILOSEC [Concomitant]
  5. ZOFRAN [Concomitant]
  6. PERCOCET [Concomitant]

REACTIONS (2)
  - Cerebrovascular accident [Fatal]
  - Cerebrovascular accident [Fatal]
